FAERS Safety Report 9289207 (Version 1)
Quarter: 2013Q2

REPORT INFORMATION
  Report Type: Spontaneous
  Country: US (occurrence: US)
  Receive Date: 20130514
  Receipt Date: 20130514
  Transmission Date: 20140414
  Serious: No
  Sender: FDA-Public Use
  Company Number: US-ASTRAZENECA-2013SE30251

PATIENT
  Sex: Female

DRUGS (3)
  1. ARIMIDEX [Suspect]
     Route: 048
  2. NUVIGIL [Suspect]
     Indication: SOMNOLENCE
     Route: 065
     Dates: start: 20130422
  3. NUVIGIL [Suspect]
     Indication: FATIGUE
     Route: 065
     Dates: start: 20130422

REACTIONS (4)
  - Feeling abnormal [Unknown]
  - Logorrhoea [Unknown]
  - Initial insomnia [Unknown]
  - Fatigue [Unknown]
